FAERS Safety Report 25416990 (Version 1)
Quarter: 2025Q2

REPORT INFORMATION
  Report Type: Spontaneous
  Country: CN (occurrence: CN)
  Receive Date: 20250610
  Receipt Date: 20250610
  Transmission Date: 20250717
  Serious: Yes (Hospitalization)
  Sender: ANI
  Company Number: None

PATIENT
  Age: 11 Year
  Sex: Female

DRUGS (8)
  1. FLUVOXAMINE MALEATE [Suspect]
     Active Substance: FLUVOXAMINE MALEATE
     Indication: Behaviour disorder
     Route: 048
     Dates: start: 20250422, end: 20250505
  2. LORAZEPAM [Concomitant]
     Active Substance: LORAZEPAM
     Indication: Behaviour disorder
     Route: 048
     Dates: start: 20250422
  3. PALIPERIDONE [Concomitant]
     Active Substance: PALIPERIDONE
     Indication: Behaviour disorder
     Route: 048
     Dates: start: 20250513
  4. FLUVOXAMINE MALEATE [Suspect]
     Active Substance: FLUVOXAMINE MALEATE
     Indication: Emotional disorder
     Route: 048
     Dates: start: 20250506
  5. LORAZEPAM [Concomitant]
     Active Substance: LORAZEPAM
     Indication: Emotional disorder
     Route: 048
     Dates: start: 20250422
  6. PALIPERIDONE [Concomitant]
     Active Substance: PALIPERIDONE
     Indication: Emotional disorder
     Route: 048
     Dates: start: 20250513
  7. FLUVOXAMINE MALEATE [Suspect]
     Active Substance: FLUVOXAMINE MALEATE
     Indication: Emotional disorder
     Route: 048
     Dates: start: 20250422, end: 20250505
  8. FLUVOXAMINE MALEATE [Suspect]
     Active Substance: FLUVOXAMINE MALEATE
     Indication: Behaviour disorder
     Route: 048
     Dates: start: 20250506

REACTIONS (1)
  - Liver function test abnormal [Not Recovered/Not Resolved]

NARRATIVE: CASE EVENT DATE: 20250520
